FAERS Safety Report 13764070 (Version 1)
Quarter: 2017Q3

REPORT INFORMATION
  Report Type: Spontaneous
  Country: US (occurrence: US)
  Receive Date: 20170718
  Receipt Date: 20170718
  Transmission Date: 20171127
  Serious: No
  Sender: FDA-Public Use
  Company Number: US-VANDA PHARMACEUTICALS, INC-2017TASUS001611

PATIENT
  Sex: Female

DRUGS (1)
  1. HETLIOZ [Suspect]
     Active Substance: TASIMELTEON
     Indication: CIRCADIAN RHYTHM SLEEP DISORDER
     Dosage: 20 MG, EVERY 24 HRS.
     Dates: start: 201704, end: 2017

REACTIONS (6)
  - Fall [Unknown]
  - Limb injury [Unknown]
  - Somnolence [Unknown]
  - Therapy cessation [Unknown]
  - Pain in extremity [Unknown]
  - Dizziness [Unknown]
